FAERS Safety Report 11010580 (Version 1)
Quarter: 2015Q2

REPORT INFORMATION
  Report Type: Spontaneous
  Country: US (occurrence: US)
  Receive Date: 20150410
  Receipt Date: 20150410
  Transmission Date: 20150821
  Serious: Yes (Death, Hospitalization, Other)
  Sender: FDA-Public Use
  Company Number: US-ASTRAZENECA-2015SE31660

PATIENT
  Age: 24236 Day
  Sex: Female

DRUGS (14)
  1. LIPITOR [Concomitant]
     Active Substance: ATORVASTATIN CALCIUM
  2. GLUCOPHAGE [Concomitant]
     Active Substance: METFORMIN HYDROCHLORIDE
  3. OMEPRAZOLE. [Concomitant]
     Active Substance: OMEPRAZOLE
  4. FUROSEMIDE. [Concomitant]
     Active Substance: FUROSEMIDE
     Dates: start: 20040706
  5. DILTIA XT [Concomitant]
     Active Substance: DILTIAZEM HYDROCHLORIDE
  6. ONDANSETRON HCL [Concomitant]
     Active Substance: ONDANSETRON HYDROCHLORIDE
  7. GLIPIZIDE/GLIPIZIDE XL [Concomitant]
     Dates: start: 20120223
  8. HYZAAR [Concomitant]
     Active Substance: HYDROCHLOROTHIAZIDE\LOSARTAN POTASSIUM
  9. SIMVASTATIN. [Concomitant]
     Active Substance: SIMVASTATIN
     Dates: start: 20080408
  10. BYETTA [Suspect]
     Active Substance: EXENATIDE
     Dosage: 250 MCG
     Route: 065
     Dates: start: 20080623
  11. VICTOZA [Concomitant]
     Active Substance: LIRAGLUTIDE
  12. CARTIA XT [Concomitant]
     Active Substance: DILTIAZEM HYDROCHLORIDE
     Dates: start: 20060824
  13. AZITHROMYCIN [Concomitant]
     Active Substance: AZITHROMYCIN ANHYDROUS
     Dosage: 25 MG DOSE
     Dates: start: 20070130
  14. AVANDIA [Concomitant]
     Active Substance: ROSIGLITAZONE MALEATE

REACTIONS (3)
  - Metastases to lung [Unknown]
  - Pancreatic carcinoma metastatic [Fatal]
  - Jaundice cholestatic [Unknown]

NARRATIVE: CASE EVENT DATE: 20110812
